FAERS Safety Report 5150022-0 (Version None)
Quarter: 2006Q4

REPORT INFORMATION
  Report Type: 
  Country: None (occurrence: None)
  Receive Date: 20061108
  Receipt Date: 20061026
  Transmission Date: 20070319
  Serious: Yes (Hospitalization)
  Sender: FDA-Public Use
  Company Number: 231825

PATIENT
  Age: 74 Year
  Sex: Male
  Weight: 93.4 kg

DRUGS (11)
  1. AVASTIN [Suspect]
     Indication: CARCINOID TUMOUR
     Dosage: 5 MG/KG, Q2W, INTRAVENOUS
     Route: 042
     Dates: start: 20060712, end: 20060927
  2. OXALIPLANTIN                  (OXALIPLATIN) [Suspect]
     Indication: CARCINOID TUMOUR
     Dosage: 85 MG/M2, Q2W, INTRAVENOUS
     Route: 042
     Dates: start: 20060712, end: 20060927
  3. LEUCOVORIN CALCIUM [Suspect]
     Indication: CARCINOID TUMOUR
     Dosage: 200 MG/M2, Q2W, INTRAVENOUS
     Route: 042
     Dates: start: 20060712, end: 20060927
  4. FLUOROURACIL [Suspect]
     Indication: CARCINOID TUMOUR
     Dosage: 1200 MG/M2, Q2W, INTRAVENOUS
     Route: 042
     Dates: start: 20060712, end: 20060927
  5. SANDOSTATIN LAR       (OCTREOTIDE ACETATE) [Concomitant]
  6. LASIX [Concomitant]
  7. ACYCLOVIR [Concomitant]
  8. SPIRONOLACTONE [Concomitant]
  9. ARANESP [Concomitant]
  10. IMODIUM [Concomitant]
  11. LOMOTIL [Concomitant]

REACTIONS (7)
  - ASCITES [None]
  - DISEASE PROGRESSION [None]
  - FAILURE TO THRIVE [None]
  - LIVER FUNCTION TEST ABNORMAL [None]
  - NEUROENDOCRINE TUMOUR [None]
  - PERFORMANCE STATUS DECREASED [None]
  - PITTING OEDEMA [None]
